FAERS Safety Report 8814341 (Version 1)
Quarter: 2012Q4

REPORT INFORMATION
  Report Type: Spontaneous
  Country: JP (occurrence: None)
  Receive Date: 20120925
  Receipt Date: 20120925
  Transmission Date: 20130627
  Serious: Yes (Other)
  Sender: FDA-Public Use
  Company Number: 2012P1058398

PATIENT
  Age: 76 Year
  Sex: Female

DRUGS (5)
  1. FAMOTIDINE [Suspect]
     Route: 048
  2. PRIMPERAN [Suspect]
     Indication: POSTOPERATIVE NAUSEA
  3. ANESTHETIC NOS [Suspect]
  4. HERBAL MEDICINES [Suspect]
     Dates: end: 201208
  5. UNSPECIFIED MEDICATIONS [Concomitant]

REACTIONS (3)
  - Delirium [None]
  - Drug ineffective [None]
  - Nausea [None]
